FAERS Safety Report 8910446 (Version 2)
Quarter: 2015Q1

REPORT INFORMATION
  Report Type: Spontaneous
  Country: NL (occurrence: NL)
  Receive Date: 20121115
  Receipt Date: 20150107
  Transmission Date: 20150721
  Serious: Yes (Hospitalization, Other)
  Sender: FDA-Public Use
  Company Number: NL-RANBAXY-2012R1-62071

PATIENT
  Age: 72 Year
  Sex: Female

DRUGS (4)
  1. PARACETAMOL [Interacting]
     Active Substance: ACETAMINOPHEN
     Indication: PRODUCT USED FOR UNKNOWN INDICATION
     Dosage: UNK
     Route: 065
  2. METFORMIN [Concomitant]
     Active Substance: METFORMIN HYDROCHLORIDE
     Indication: PRODUCT USED FOR UNKNOWN INDICATION
     Dosage: UNK
     Route: 065
  3. CARBASALATE CALCIUM [Concomitant]
     Active Substance: CARBASALATE
     Indication: PRODUCT USED FOR UNKNOWN INDICATION
     Dosage: UNK
     Route: 065
  4. FLUCLOXACILLIN [Suspect]
     Active Substance: FLUCLOXACILLIN
     Indication: INFECTION
     Dosage: UNK
     Route: 042

REACTIONS (3)
  - Drug interaction [Recovering/Resolving]
  - Acidosis [Recovering/Resolving]
  - Metabolic acidosis [Recovering/Resolving]
